FAERS Safety Report 22677318 (Version 2)
Quarter: 2023Q4

REPORT INFORMATION
  Report Type: Spontaneous
  Country: PL (occurrence: PL)
  Receive Date: 20230706
  Receipt Date: 20231020
  Transmission Date: 20240110
  Serious: Yes (Other)
  Sender: FDA-Public Use
  Company Number: PL-SUN PHARMACEUTICAL INDUSTRIES LTD-2023RR-397339

PATIENT
  Age: 26 Year
  Sex: Female

DRUGS (15)
  1. LEVETIRACETAM [Suspect]
     Active Substance: LEVETIRACETAM
     Indication: Polyneuropathy
     Dosage: 2000 MILLIGRAM, UNK
     Route: 065
  2. MORPHINE [Suspect]
     Active Substance: MORPHINE
     Indication: Pain
     Dosage: UNK
     Route: 065
  3. PAROXETINE [Suspect]
     Active Substance: PAROXETINE
     Indication: Polyneuropathy
     Dosage: 80 MILLIGRAM, UNK
     Route: 065
  4. GABAPENTIN [Suspect]
     Active Substance: GABAPENTIN
     Indication: Polyneuropathy
     Dosage: 1200 MILLIGRAM, UNK
     Route: 065
  5. VALPROIC ACID [Suspect]
     Active Substance: VALPROIC ACID
     Indication: Polyneuropathy
     Dosage: 600 MILLIGRAM, UNK
     Route: 065
  6. VALPROIC ACID [Suspect]
     Active Substance: VALPROIC ACID
     Indication: Product used for unknown indication
     Dosage: 300 MILLIGRAM
     Route: 065
  7. VALPROIC ACID [Suspect]
     Active Substance: VALPROIC ACID
     Dosage: 2 X 300 MG
     Route: 065
  8. CLONAZEPAM [Suspect]
     Active Substance: CLONAZEPAM
     Indication: Polyneuropathy
     Dosage: 1 MILLIGRAM, UNK
     Route: 065
  9. PREDNISONE [Suspect]
     Active Substance: PREDNISONE
     Indication: Neuralgia
     Dosage: UNK
     Route: 065
  10. IBUPROFEN [Suspect]
     Active Substance: IBUPROFEN
     Indication: Neuralgia
     Dosage: UNK
     Route: 065
  11. PIRACETAM [Suspect]
     Active Substance: PIRACETAM
     Indication: Polyneuropathy
     Dosage: 4800 MILLIGRAM, UNK
     Route: 065
  12. AMITRIPTYLINE [Concomitant]
     Active Substance: AMITRIPTYLINE
     Indication: Pain
     Dosage: 50 MILLIGRAM AT NIGHT
     Route: 065
  13. Duloxentine [Concomitant]
     Indication: Pain
     Dosage: UNK
     Route: 065
  14. PREDNISONE [Concomitant]
     Active Substance: PREDNISONE
     Indication: Pain
     Dosage: UNK
     Route: 065
  15. MORPHINE [Concomitant]
     Active Substance: MORPHINE
     Indication: Neuralgia
     Dosage: 2 X 30 MG
     Route: 065

REACTIONS (2)
  - Abdominal pain [Recovering/Resolving]
  - Mitochondrial toxicity [Recovering/Resolving]
